FAERS Safety Report 6781328-7 (Version None)
Quarter: 2010Q2

REPORT INFORMATION
  Report Type: 
  Country: None (occurrence: None)
  Receive Date: 20100621
  Receipt Date: 20100609
  Transmission Date: 20101027
  Serious: Yes (Death)
  Sender: FDA-Public Use
  Company Number: US-NOVOPROD-310109

PATIENT
  Age: 89 Year
  Sex: Female
  Weight: 59 kg

DRUGS (1)
  1. NOVOSEVEN RT [Suspect]
     Indication: POST PROCEDURAL HAEMORRHAGE
     Dosage: 5000 UG, SINGLE
     Route: 042
     Dates: start: 20091105, end: 20091105

REACTIONS (5)
  - ATRIOVENTRICULAR BLOCK [None]
  - CARDIAC ARREST [None]
  - RENAL FAILURE ACUTE [None]
  - RESPIRATORY ARREST [None]
  - THROMBOCYTOPENIA [None]
